FAERS Safety Report 23742812 (Version 1)
Quarter: 2024Q2

REPORT INFORMATION
  Report Type: Spontaneous
  Country: IT (occurrence: IT)
  Receive Date: 20240415
  Receipt Date: 20240415
  Transmission Date: 20240716
  Serious: Yes (Other)
  Sender: FDA-Public Use
  Company Number: IT-ORGANON-O2404ITA001090

PATIENT
  Age: 21 Year
  Sex: Female

DRUGS (1)
  1. NUVARING [Suspect]
     Active Substance: ETHINYL ESTRADIOL\ETONOGESTREL
     Dosage: 1 RING
     Route: 067
     Dates: start: 202306, end: 202312

REACTIONS (3)
  - Dermatitis exfoliative [Recovering/Resolving]
  - Face oedema [Recovering/Resolving]
  - Vulvovaginal discomfort [Unknown]
